FAERS Safety Report 7203478-3 (Version None)
Quarter: 2010Q4

REPORT INFORMATION
  Report Type: 
  Country: None (occurrence: None)
  Receive Date: 20101228
  Receipt Date: 20101228
  Transmission Date: 20110411
  Serious: Yes (Death, Hospitalization)
  Sender: FDA-Public Use
  Company Number: None

PATIENT
  Sex: Male
  Weight: 17.8 kg

DRUGS (5)
  1. PREDNISONE [Suspect]
     Dosage: 1400 MG
     Dates: end: 20101215
  2. CYTARABINE [Suspect]
     Dosage: 70 MG
     Dates: end: 20101118
  3. DAUNORUBICIN [Suspect]
     Dosage: 78.4 MG
  4. METHOTREXATE [Suspect]
     Dosage: 12 MG
     Dates: end: 20101125
  5. PEG-L- ASPARAGINASE (K- H) [Suspect]
     Dosage: 1975 IU
     Dates: end: 20101121

REACTIONS (5)
  - BRAIN OEDEMA [None]
  - CARDIO-RESPIRATORY ARREST [None]
  - HERNIA OBSTRUCTIVE [None]
  - HYDROCEPHALUS [None]
  - HYPOXIA [None]
